FAERS Safety Report 9205200 (Version 1)
Quarter: 2013Q2

REPORT INFORMATION
  Report Type: Spontaneous
  Country: JP (occurrence: JP)
  Receive Date: 20130402
  Receipt Date: 20130402
  Transmission Date: 20140414
  Serious: Yes (Death, Other)
  Sender: FDA-Public Use
  Company Number: PHHY2013JP031500

PATIENT
  Age: 74 Year
  Sex: Male

DRUGS (9)
  1. GANCICLOVIR [Suspect]
     Indication: CYTOMEGALOVIRUS CHORIORETINITIS
     Dosage: 500 UG, UNK
     Dates: start: 20110525
  2. GANCICLOVIR [Suspect]
     Dosage: 1000 UG, UNK
     Dates: start: 20110611
  3. GANCICLOVIR [Suspect]
     Dosage: 1000 UG, UNK
     Dates: start: 20111117
  4. TRIAMCINOLONE [Suspect]
     Indication: UVEITIS
  5. VALGANCICLOVIR [Suspect]
     Indication: CYTOMEGALOVIRUS CHORIORETINITIS
     Dosage: 1800 MG, QD
     Route: 048
     Dates: start: 20110628
  6. VALGANCICLOVIR [Suspect]
     Dosage: 900 MG, QD
     Route: 048
     Dates: start: 20110722, end: 20110820
  7. VALGANCICLOVIR [Suspect]
     Dosage: 1800 MG, QD
     Route: 048
     Dates: start: 20110922
  8. VALGANCICLOVIR [Suspect]
     Dosage: 900 MG, QD
     Route: 048
     Dates: start: 20111021
  9. VALGANCICLOVIR [Suspect]
     Dosage: 450 MG, QD
     Route: 048

REACTIONS (4)
  - Death [Fatal]
  - Retinal disorder [Unknown]
  - Condition aggravated [Unknown]
  - Drug ineffective [Unknown]
